FAERS Safety Report 13284814 (Version 2)
Quarter: 2017Q2

REPORT INFORMATION
  Report Type: Spontaneous
  Country: US (occurrence: US)
  Receive Date: 20170301
  Receipt Date: 20170424
  Transmission Date: 20170830
  Serious: Yes (Other)
  Sender: FDA-Public Use
  Company Number: US-SA-2017SA031959

PATIENT
  Age: 47 Year
  Sex: Male

DRUGS (1)
  1. AUBAGIO [Suspect]
     Active Substance: TERIFLUNOMIDE
     Indication: MULTIPLE SCLEROSIS
     Route: 048
     Dates: start: 201612

REACTIONS (6)
  - Faeces soft [Unknown]
  - Crohn^s disease [Unknown]
  - Haematochezia [Unknown]
  - Candida infection [Unknown]
  - Mucous stools [Unknown]
  - Vasculitis [Unknown]

NARRATIVE: CASE EVENT DATE: 201612
